FAERS Safety Report 24077083 (Version 2)
Quarter: 2025Q2

REPORT INFORMATION
  Report Type: Spontaneous
  Country: US (occurrence: US)
  Receive Date: 20240711
  Receipt Date: 20250605
  Transmission Date: 20250716
  Serious: No
  Sender: PIERRE FABRE MEDICAMENT
  Company Number: US-PFM-2023-05463

PATIENT
  Sex: Female
  Weight: 9.7 kg

DRUGS (2)
  1. HEMANGEOL [Suspect]
     Active Substance: PROPRANOLOL HYDROCHLORIDE
     Indication: Haemangioma
     Dosage: 1.5 ML, BID (2/DAY)
     Dates: start: 20230927
  2. HEMANGEOL [Suspect]
     Active Substance: PROPRANOLOL HYDROCHLORIDE

REACTIONS (7)
  - Pallor [Recovering/Resolving]
  - Condition aggravated [Unknown]
  - Haemangioma [Unknown]
  - Cyanosis [Unknown]
  - Peripheral coldness [Unknown]
  - Product administered to patient of inappropriate age [Unknown]
  - Off label use [Unknown]
